FAERS Safety Report 7959343-7 (Version None)
Quarter: 2011Q4

REPORT INFORMATION
  Report Type: 
  Country: None (occurrence: None)
  Receive Date: 20111206
  Receipt Date: 20111130
  Transmission Date: 20120403
  Serious: Yes (Hospitalization)
  Sender: FDA-Public Use
  Company Number: DK-PFIZER INC-2009275922

PATIENT
  Age: 67 Year
  Sex: Male
  Weight: 90 kg

DRUGS (3)
  1. CORODIL COMP [Concomitant]
     Dosage: 20 + 12.5 MG TABL. DAILY
  2. CELECOXIB [Suspect]
     Indication: OSTEOARTHRITIS
     Dosage: 100 MG, 2X/DAY
     Route: 048
     Dates: start: 20090109
  3. OMEPRAZOLE [Concomitant]
     Dosage: 40 MG, 2X/DAY

REACTIONS (7)
  - CONDITION AGGRAVATED [None]
  - EJECTION FRACTION DECREASED [None]
  - ARRHYTHMIA [None]
  - ATRIAL FIBRILLATION [None]
  - LEFT VENTRICULAR HYPERTROPHY [None]
  - DILATATION VENTRICULAR [None]
  - TRICUSPID VALVE INCOMPETENCE [None]
